FAERS Safety Report 6917306-4 (Version None)
Quarter: 2010Q3

REPORT INFORMATION
  Report Type: 
  Country: None (occurrence: None)
  Receive Date: 20100810
  Receipt Date: 20100727
  Transmission Date: 20110219
  Serious: Yes (Hospitalization, Other)
  Sender: FDA-Public Use
  Company Number: US-ELI_LILLY_AND_COMPANY-US201007007291

PATIENT
  Sex: Female

DRUGS (7)
  1. ZYPREXA [Suspect]
     Indication: SCHIZOPHRENIA
     Dosage: 10 MG, DAILY (1/D)
  2. ZYPREXA [Suspect]
     Dosage: 15 MG, DAILY (1/D)
  3. ALBUTEROL [Concomitant]
  4. IBUPROFEN [Concomitant]
  5. VICODIN [Concomitant]
  6. RANITIDINE [Concomitant]
  7. IRON [Concomitant]

REACTIONS (19)
  - ABASIA [None]
  - APHAGIA [None]
  - ASTHENIA [None]
  - BLISTER [None]
  - BLOOD GLUCOSE INCREASED [None]
  - BRAIN NEOPLASM [None]
  - DIABETES MELLITUS [None]
  - DIZZINESS [None]
  - DYSMENORRHOEA [None]
  - DYSURIA [None]
  - HEADACHE [None]
  - MENORRHAGIA [None]
  - OEDEMA PERIPHERAL [None]
  - PAIN [None]
  - POLLAKIURIA [None]
  - THIRST [None]
  - VISION BLURRED [None]
  - WEIGHT DECREASED [None]
  - WEIGHT INCREASED [None]
